FAERS Safety Report 7729388-0 (Version None)
Quarter: 2011Q3

REPORT INFORMATION
  Report Type: 
  Country: None (occurrence: None)
  Receive Date: 20110906
  Receipt Date: 20110830
  Transmission Date: 20111222
  Serious: Yes (Death, Hospitalization)
  Sender: FDA-Public Use
  Company Number: JP-JNJFOC-20101100613

PATIENT
  Sex: Female
  Weight: 39 kg

DRUGS (32)
  1. RAMELTEON [Concomitant]
     Route: 042
     Dates: start: 20090728, end: 20090728
  2. RAMELTEON [Concomitant]
     Indication: PROPHYLAXIS
     Route: 048
     Dates: start: 20091118, end: 20091122
  3. RAMELTEON [Concomitant]
     Route: 048
     Dates: start: 20090826, end: 20090830
  4. LAXOBERON [Concomitant]
     Indication: OVARIAN CANCER RECURRENT
     Route: 048
     Dates: start: 20091218
  5. DOXORUBICIN HCL [Suspect]
     Dosage: CYCLE 3
     Route: 042
     Dates: start: 20090925, end: 20090925
  6. RAMELTEON [Concomitant]
     Route: 048
     Dates: start: 20091216, end: 20091220
  7. RAMELTEON [Concomitant]
     Route: 048
     Dates: start: 20091023, end: 20091027
  8. RAMELTEON [Concomitant]
     Route: 048
     Dates: start: 20090729, end: 20090802
  9. ALBUMIN (HUMAN) [Concomitant]
     Route: 042
     Dates: start: 20090810, end: 20090811
  10. PRIMPERAN TAB [Concomitant]
     Indication: ABDOMINAL PAIN
     Route: 048
     Dates: start: 20091207, end: 20091213
  11. MAGNESIUM SULFATE [Concomitant]
     Indication: CONSTIPATION
     Route: 048
     Dates: start: 20090929
  12. RAMELTEON [Concomitant]
     Route: 042
     Dates: start: 20090825, end: 20090825
  13. TPN ELECTROLYTES IN PLASTIC CONTAINER [Concomitant]
     Indication: HYPOPROTEINAEMIA
     Route: 041
     Dates: start: 20091217, end: 20091217
  14. TPN ELECTROLYTES IN PLASTIC CONTAINER [Concomitant]
     Route: 041
     Dates: start: 20091117, end: 20091117
  15. DOXORUBICIN HCL [Suspect]
     Dosage: CYCLE 1
     Route: 042
     Dates: start: 20090728, end: 20090728
  16. DOXORUBICIN HCL [Suspect]
     Dosage: CYCLE 6
     Route: 042
     Dates: start: 20091215, end: 20091215
  17. DOXORUBICIN HCL [Suspect]
     Dosage: CYCLE 2
     Route: 042
     Dates: start: 20090825, end: 20090825
  18. LENDORMIN [Concomitant]
     Indication: OVARIAN CANCER RECURRENT
     Route: 048
     Dates: start: 20091022, end: 20091022
  19. RAMELTEON [Concomitant]
     Route: 042
     Dates: start: 20091215, end: 20091215
  20. FAMOTIDINE [Concomitant]
     Indication: ABDOMINAL PAIN
     Route: 048
     Dates: start: 20091029
  21. DOXORUBICIN HCL [Suspect]
     Indication: OVARIAN CANCER RECURRENT
     Dosage: CYCLE 4
     Route: 042
     Dates: start: 20091022, end: 20091022
  22. RAMELTEON [Concomitant]
     Route: 048
     Dates: start: 20090926, end: 20090930
  23. RAMELTEON [Concomitant]
     Indication: PROPHYLAXIS
     Route: 042
     Dates: start: 20090925, end: 20090925
  24. RAMELTEON [Concomitant]
     Route: 042
     Dates: start: 20091022, end: 20091022
  25. SELBEX [Concomitant]
     Indication: ABDOMINAL PAIN
     Route: 048
     Dates: start: 20091019
  26. DOXORUBICIN HCL [Suspect]
     Dosage: CYCLE 5
     Route: 042
     Dates: start: 20091117, end: 20091117
  27. RAMELTEON [Concomitant]
     Route: 042
     Dates: start: 20091117, end: 20091117
  28. ALBUMIN (HUMAN) [Concomitant]
     Indication: HYPOPROTEINAEMIA
     Route: 042
     Dates: start: 20091215, end: 20091216
  29. LOXONIN [Concomitant]
     Indication: ABDOMINAL PAIN
     Route: 048
     Dates: start: 20090812, end: 20090821
  30. LOXONIN [Concomitant]
     Route: 048
     Dates: start: 20090907
  31. LAXOBERON [Concomitant]
     Indication: CONSTIPATION
     Route: 048
     Dates: start: 20091218
  32. POVIDONE IODINE [Concomitant]
     Indication: PROPHYLAXIS
     Route: 049
     Dates: start: 20090820, end: 20090830

REACTIONS (2)
  - INTESTINAL OBSTRUCTION [None]
  - OVARIAN CANCER RECURRENT [None]
